FAERS Safety Report 5579972-8 (Version None)
Quarter: 2007Q4

REPORT INFORMATION
  Report Type: 
  Country: None (occurrence: None)
  Receive Date: 20071226
  Receipt Date: 20071220
  Transmission Date: 20080405
  Serious: Yes (Other)
  Sender: FDA-Public Use
  Company Number: A0700217A

PATIENT
  Age: 70 Year
  Sex: Female

DRUGS (1)
  1. CALCIUM CARBONATE TABLET-CHEWABLE (CALCIUM CARBONATE) [Suspect]
     Dosage: ORAL
     Route: 048

REACTIONS (3)
  - CONSTIPATION [None]
  - RECTAL HAEMORRHAGE [None]
  - RECTAL TENESMUS [None]
